FAERS Safety Report 20785318 (Version 1)
Quarter: 2022Q2

REPORT INFORMATION
  Report Type: Spontaneous
  Country: US (occurrence: None)
  Receive Date: 20220504
  Receipt Date: 20220504
  Transmission Date: 20220720
  Serious: Yes (Disabling)
  Sender: FDA-Public Use
  Company Number: None

PATIENT
  Age: 86 Year
  Sex: Female
  Weight: 89.81 kg

DRUGS (3)
  1. CLINDAMYCIN [Suspect]
     Active Substance: CLINDAMYCIN
     Indication: Tooth infection
     Dosage: FREQUENCY : EVERY 4 HOURS;?
     Route: 048
     Dates: start: 20220303, end: 20220311
  2. Vit B-12 [Concomitant]
  3. Sleep aid [Concomitant]

REACTIONS (1)
  - Rash [None]
